FAERS Safety Report 6097387-3 (Version None)
Quarter: 2009Q1

REPORT INFORMATION
  Report Type: 
  Country: None (occurrence: None)
  Receive Date: 20090227
  Receipt Date: 20080212
  Transmission Date: 20090719
  Serious: No
  Sender: FDA-Public Use
  Company Number: A0709125A

PATIENT
  Age: 53 Year
  Sex: Female

DRUGS (6)
  1. IMITREX [Suspect]
     Indication: MIGRAINE
     Route: 058
     Dates: start: 19830101, end: 19890101
  2. IMITREX [Suspect]
     Route: 048
     Dates: start: 19890101
  3. HYDROCODONE [Concomitant]
  4. TOPAMAX [Concomitant]
  5. PROZAC [Concomitant]
  6. XANAX [Concomitant]

REACTIONS (3)
  - CHEST PAIN [None]
  - INJECTION SITE ERYTHEMA [None]
  - MUSCULOSKELETAL PAIN [None]
